FAERS Safety Report 12401679 (Version 2)
Quarter: 2016Q2

REPORT INFORMATION
  Report Type: Spontaneous
  Country: US (occurrence: US)
  Receive Date: 20160525
  Receipt Date: 20160527
  Transmission Date: 20160815
  Serious: No
  Sender: FDA-Public Use
  Company Number: US-SA-2015SA179027

PATIENT
  Age: 72 Year
  Sex: Female
  Weight: 133 kg

DRUGS (2)
  1. LANTUS [Suspect]
     Active Substance: INSULIN GLARGINE
     Indication: TYPE 2 DIABETES MELLITUS
     Dosage: 40 AM, 75 NIGHT?DAILY DOSE:115
     Route: 065
     Dates: start: 20151116
  2. LANTUS [Suspect]
     Active Substance: INSULIN GLARGINE
     Indication: TYPE 2 DIABETES MELLITUS
     Dosage: 40 AM, 75 NIGHT?DAILY DOSE:115
     Route: 065
     Dates: start: 2004

REACTIONS (4)
  - Product use issue [Unknown]
  - Spondylitis [Unknown]
  - Arthritis [Unknown]
  - Weight increased [Recovered/Resolved]
